FAERS Safety Report 4877016-4 (Version None)
Quarter: 2005Q4

REPORT INFORMATION
  Report Type: 
  Country: None (occurrence: None)
  Receive Date: 20051206
  Receipt Date: 20051027
  Transmission Date: 20060501
  Serious: No
  Sender: FDA-Public Use
  Company Number: USA0509108426

PATIENT
  Age: 51 Year
  Sex: Female

DRUGS (3)
  1. CYMBALTA [Suspect]
     Indication: NEURALGIA
     Dosage: 30 MG DAY
     Dates: start: 20050728, end: 20050701
  2. OXYCODONE [Concomitant]
  3. VITAMIN B-12 [Concomitant]

REACTIONS (6)
  - COORDINATION ABNORMAL [None]
  - DIFFICULTY IN WALKING [None]
  - GAIT DISTURBANCE [None]
  - HYPOAESTHESIA [None]
  - MUSCLE DISORDER [None]
  - MUSCLE SPASTICITY [None]
